FAERS Safety Report 7028247-9 (Version None)
Quarter: 2010Q4

REPORT INFORMATION
  Report Type: 
  Country: None (occurrence: None)
  Receive Date: 20101005
  Receipt Date: 20101004
  Transmission Date: 20110411
  Serious: Yes (Disabling)
  Sender: FDA-Public Use
  Company Number: GB-TEVA-250473ISR

PATIENT
  Age: 75 Year
  Sex: Male
  Weight: 95 kg

DRUGS (1)
  1. SIMVASTATIN [Suspect]
     Dates: start: 20090416, end: 20090820

REACTIONS (1)
  - GAIT DISTURBANCE [None]
